FAERS Safety Report 7922319 (Version 4)
Quarter: 2013Q2

REPORT INFORMATION
  Report Type: Spontaneous
  Country: US (occurrence: US)
  Receive Date: 20110429
  Receipt Date: 20130520
  Transmission Date: 20140414
  Serious: Yes (Hospitalization)
  Sender: FDA-Public Use
  Company Number: US-ASTRAZENECA-2011SE05392

PATIENT
  Age: 78 Year
  Sex: Female

DRUGS (2)
  1. NEXIUM [Suspect]
     Route: 048
  2. OMEPRAZOLE [Suspect]
     Route: 048

REACTIONS (6)
  - Oesophageal disorder [Unknown]
  - Oesophageal polyp [Unknown]
  - Nasopharyngitis [Unknown]
  - Bronchitis [Unknown]
  - Malaise [Unknown]
  - Drug ineffective [Unknown]
